FAERS Safety Report 4733603-5 (Version None)
Quarter: 2005Q3

REPORT INFORMATION
  Report Type: 
  Country: None (occurrence: None)
  Receive Date: 20050729
  Receipt Date: 20050719
  Transmission Date: 20060218
  Serious: Yes (Other)
  Sender: FDA-Public Use
  Company Number: 2005103691

PATIENT
  Age: 31 Year
  Sex: Female

DRUGS (1)
  1. DEPO-PROVERA [Suspect]
     Indication: CONTRACEPTION
     Dosage: 150 MG (150 MG, 1ST INJECTION, SINGLE, TRIMESTRAL), UNKNOWN
     Route: 065
     Dates: start: 20050201, end: 20050201

REACTIONS (3)
  - GALLBLADDER OPERATION [None]
  - MENORRHAGIA [None]
  - MIGRAINE [None]
